FAERS Safety Report 24030982 (Version 4)
Quarter: 2025Q1

REPORT INFORMATION
  Report Type: Spontaneous
  Country: US (occurrence: US)
  Receive Date: 20240628
  Receipt Date: 20250212
  Transmission Date: 20250408
  Serious: No
  Sender: APELLIS PHARMACEUTICALS
  Company Number: US-APELLIS-2024-APL-0000319

PATIENT

DRUGS (3)
  1. SYFOVRE [Suspect]
     Active Substance: PEGCETACOPLAN
     Indication: Neovascular age-related macular degeneration
     Route: 031
  2. SYFOVRE [Suspect]
     Active Substance: PEGCETACOPLAN
     Indication: Neovascular age-related macular degeneration
     Route: 031
  3. LUCENTIS [Concomitant]
     Active Substance: RANIBIZUMAB
     Indication: Product used for unknown indication

REACTIONS (5)
  - Eye irritation [Unknown]
  - Visual impairment [Unknown]
  - Visual snow syndrome [Unknown]
  - Injection site pain [Recovered/Resolved]
  - Injection site pain [Unknown]

NARRATIVE: CASE EVENT DATE: 20250108
